FAERS Safety Report 26111508 (Version 1)
Quarter: 2025Q4

REPORT INFORMATION
  Report Type: Report from Study
  Country: US (occurrence: US)
  Receive Date: 20251202
  Receipt Date: 20251202
  Transmission Date: 20260117
  Serious: Yes (Hospitalization)
  Sender: ABBVIE
  Company Number: US-ABBVIE-6562906

PATIENT
  Age: 59 Year
  Sex: Female

DRUGS (4)
  1. RINVOQ [Suspect]
     Active Substance: UPADACITINIB
     Indication: Rheumatoid arthritis
     Dosage: UNKNOWN
     Route: 048
  2. KINERET [Concomitant]
     Active Substance: ANAKINRA
     Indication: Product used for unknown indication
  3. ENBREL [Concomitant]
     Active Substance: ETANERCEPT
     Indication: Product used for unknown indication
  4. LIPITOR [Suspect]
     Active Substance: ATORVASTATIN CALCIUM
     Indication: Product used for unknown indication
     Route: 065

REACTIONS (17)
  - Sepsis [Unknown]
  - Vestibular migraine [Unknown]
  - Pyrexia [Recovered/Resolved]
  - Dysstasia [Unknown]
  - Altered state of consciousness [Unknown]
  - Vomiting [Unknown]
  - Pneumonia [Recovered/Resolved]
  - Cardiac failure [Unknown]
  - Vomiting [Unknown]
  - Diarrhoea [Recovered/Resolved]
  - Dyspnoea [Recovered/Resolved]
  - Dehydration [Recovered/Resolved]
  - Pain [Unknown]
  - Vestibular migraine [Recovered/Resolved]
  - Rheumatoid arthritis [Unknown]
  - Unevaluable event [Recovered/Resolved]
  - Pneumonia [Recovered/Resolved]

NARRATIVE: CASE EVENT DATE: 20190101
